FAERS Safety Report 4326272-X (Version None)
Quarter: 2004Q1

REPORT INFORMATION
  Report Type: 
  Country: None (occurrence: None)
  Receive Date: 20040324
  Receipt Date: 20040304
  Transmission Date: 20041129
  Serious: Yes (Hospitalization)
  Sender: FDA-Public Use
  Company Number: YITD20040022

PATIENT
  Age: 67 Year
  Sex: Male

DRUGS (6)
  1. MILRILA (MILRINONE) [Suspect]
     Dosage: 0.06 ML, ICC
     Dates: start: 20010716, end: 20010716
  2. MILRILA (MILRINONE) [Suspect]
     Dosage: 0.06 ML, ICC
     Dates: start: 20010718, end: 20010718
  3. PAPAVERINE HYROCHLORIDE [Concomitant]
  4. ATROPINE SULFATE [Concomitant]
  5. PHENTOLAMINE MESILATE [Concomitant]
  6. DINOPROST [Concomitant]

REACTIONS (8)
  - DRUG INEFFECTIVE [None]
  - ERECTILE DYSFUNCTION [None]
  - NECROSIS [None]
  - PENILE PAIN [None]
  - PEYRONIE'S DISEASE [None]
  - PRIAPISM [None]
  - PYREXIA [None]
  - SUBCUTANEOUS HAEMATOMA [None]
